FAERS Safety Report 16428191 (Version 1)
Quarter: 2019Q2

REPORT INFORMATION
  Report Type: Spontaneous
  Country: US (occurrence: US)
  Receive Date: 20190613
  Receipt Date: 20190613
  Transmission Date: 20190711
  Serious: Yes (Death, Hospitalization, Other)
  Sender: FDA-Public Use
  Company Number: US-MYLANLABS-2019M1055666

PATIENT
  Age: 65 Year
  Sex: Female

DRUGS (1)
  1. TACROLIMUS. [Suspect]
     Active Substance: TACROLIMUS
     Indication: IMMUNOSUPPRESSANT DRUG THERAPY
     Dosage: UNK
     Route: 065

REACTIONS (8)
  - Organ failure [Fatal]
  - Acute respiratory distress syndrome [Fatal]
  - Epstein-Barr virus infection [Fatal]
  - Metabolic acidosis [Fatal]
  - Mental status changes [Not Recovered/Not Resolved]
  - Haemophagocytic lymphohistiocytosis [Fatal]
  - Septic shock [Fatal]
  - Post transplant lymphoproliferative disorder [Fatal]
